FAERS Safety Report 10195981 (Version 2)
Quarter: 2014Q2

REPORT INFORMATION
  Report Type: Spontaneous
  Country: GR (occurrence: GR)
  Receive Date: 20140527
  Receipt Date: 20140603
  Transmission Date: 20141212
  Serious: Yes (Death)
  Sender: FDA-Public Use
  Company Number: PHHY2014GR063010

PATIENT
  Age: 44 Year
  Sex: Male

DRUGS (2)
  1. GLIVEC [Suspect]
     Indication: ALVEOLAR SOFT PART SARCOMA METASTATIC
     Dosage: UNK
     Dates: start: 20060206, end: 20120821
  2. GLIVEC [Suspect]
     Indication: OFF LABEL USE

REACTIONS (3)
  - Metastases to central nervous system [Fatal]
  - Alveolar soft part sarcoma metastatic [Fatal]
  - Malignant neoplasm progression [Fatal]
